FAERS Safety Report 8418706-6 (Version None)
Quarter: 2012Q2

REPORT INFORMATION
  Report Type: 
  Country: None (occurrence: None)
  Receive Date: 20120607
  Receipt Date: 20120523
  Transmission Date: 20120825
  Serious: Yes (Congenital Anomaly)
  Sender: FDA-Public Use
  Company Number: US-ELI_LILLY_AND_COMPANY-US201205004786

PATIENT

DRUGS (10)
  1. PRENATAL PLUS IRON [Concomitant]
     Dosage: 1 DF, QD
     Route: 064
     Dates: end: 20111230
  2. DULOXETINE HYDROCHLORIDE [Suspect]
     Dosage: 60 MG, QD
     Route: 064
     Dates: start: 20110401, end: 20110401
  3. DULOXETINE HYDROCHLORIDE [Suspect]
     Dosage: 30 MG, QD
     Dates: start: 20110401, end: 20110512
  4. DULOXETINE HYDROCHLORIDE [Suspect]
     Dosage: 30 MG, QD
     Dates: start: 20110401, end: 20110512
  5. LABETALOL HYDROCHLORIDE [Concomitant]
     Dosage: 100 MG, QD
     Route: 064
     Dates: end: 20111230
  6. PRENATAL PLUS IRON [Concomitant]
     Dosage: 1 DF, QD
     Route: 064
     Dates: end: 20111230
  7. DULOXETINE HYDROCHLORIDE [Suspect]
     Dosage: 60 MG, QD
     Route: 064
     Dates: start: 20110401, end: 20110401
  8. DULOXETINE HYDROCHLORIDE [Suspect]
     Dosage: 30 MG, UNK
     Dates: start: 20110513, end: 20110601
  9. DULOXETINE HYDROCHLORIDE [Suspect]
     Dosage: 30 MG, UNK
     Dates: start: 20110513, end: 20110601
  10. LABETALOL HYDROCHLORIDE [Concomitant]
     Dosage: 100 MG, QD
     Route: 064
     Dates: end: 20111230

REACTIONS (5)
  - PULMONARY ARTERY STENOSIS CONGENITAL [None]
  - GASTROOESOPHAGEAL REFLUX DISEASE [None]
  - ATRIAL SEPTAL DEFECT [None]
  - FOETAL EXPOSURE DURING PREGNANCY [None]
  - ECZEMA [None]
